FAERS Safety Report 19680401 (Version 1)
Quarter: 2021Q3

REPORT INFORMATION
  Report Type: Report from Study
  Country: US (occurrence: US)
  Receive Date: 20210810
  Receipt Date: 20210810
  Transmission Date: 20211014
  Serious: Yes (Disabling)
  Sender: FDA-Public Use
  Company Number: US-SA-2021SA256765

PATIENT
  Sex: Female

DRUGS (2)
  1. TERIFLUNOMIDE. [Suspect]
     Active Substance: TERIFLUNOMIDE
     Indication: MULTIPLE SCLEROSIS
     Dosage: 7 MG, QD
     Route: 048
     Dates: end: 20181204
  2. TERIFLUNOMIDE. [Suspect]
     Active Substance: TERIFLUNOMIDE
     Dosage: 7 MG, QD
     Route: 048

REACTIONS (8)
  - Balance disorder [Unknown]
  - Irritable bowel syndrome [Unknown]
  - Vitamin B12 deficiency [Unknown]
  - Gait disturbance [Unknown]
  - Fatigue [Unknown]
  - Dysuria [Unknown]
  - Headache [Unknown]
  - Fall [Unknown]
